FAERS Safety Report 4797965-5 (Version None)
Quarter: 2005Q3

REPORT INFORMATION
  Report Type: 
  Country: None (occurrence: None)
  Receive Date: 20050929
  Receipt Date: 20050829
  Transmission Date: 20060218
  Serious: No
  Sender: FDA-Public Use
  Company Number: 05P-163-0309563-00

PATIENT
  Age: 71 Year
  Sex: Male
  Weight: 95.2554 kg

DRUGS (7)
  1. HUMIRA [Suspect]
     Indication: RHEUMATOID ARTHRITIS
     Dosage: 40 MG, 1 IN 2 WK, SUBCUTANEOUS
     Route: 058
     Dates: start: 20050501
  2. COUMADIN [Concomitant]
  3. METHOTREXATE SODIUM [Concomitant]
  4. SOTALOL HCL [Concomitant]
  5. ATORVASTATIN [Concomitant]
  6. BEMUTANIDE [Concomitant]
  7. CALCIUM GLUCONATE [Concomitant]

REACTIONS (1)
  - DRUG LEVEL INCREASED [None]
